FAERS Safety Report 15879038 (Version 1)
Quarter: 2019Q1

REPORT INFORMATION
  Report Type: Spontaneous
  Country: US (occurrence: US)
  Receive Date: 20190103
  Receipt Date: 20190103
  Transmission Date: 20190417
  Serious: Yes (Death, Hospitalization)
  Sender: FDA-Public Use
  Company Number: None

PATIENT
  Age: 18 Year
  Sex: Female
  Weight: 48.9 kg

DRUGS (3)
  1. CYTARABINE. [Suspect]
     Active Substance: CYTARABINE
     Dates: end: 20070206
  2. ETOPOSIDE (VP-16) [Suspect]
     Active Substance: ETOPOSIDE
     Dates: end: 20070131
  3. DAUNORUBICIN [Suspect]
     Active Substance: DAUNORUBICIN
     Dates: end: 20070131

REACTIONS (13)
  - Thrombocytopenia [None]
  - Pleural effusion [None]
  - Appendicitis [None]
  - Pulmonary haemorrhage [None]
  - Swelling [None]
  - Contusion [None]
  - Disseminated intravascular coagulation [None]
  - Haemoptysis [None]
  - Respiratory failure [None]
  - Fusarium infection [None]
  - Respiratory distress [None]
  - Neutropenia [None]
  - Fungal skin infection [None]

NARRATIVE: CASE EVENT DATE: 20070304
